FAERS Safety Report 4807735-7 (Version None)
Quarter: 2005Q4

REPORT INFORMATION
  Report Type: 
  Country: None (occurrence: None)
  Receive Date: 20051019
  Receipt Date: 20051003
  Transmission Date: 20060501
  Serious: Yes (Hospitalization)
  Sender: FDA-Public Use
  Company Number: FR-2005-020796

PATIENT
  Age: 62 Year
  Sex: Female

DRUGS (2)
  1. SOTALOL HCL [Suspect]
     Dosage: 1X/DAY, ORAL
     Route: 048
     Dates: start: 20040626, end: 20050527
  2. AUGMENTIN    / SCH/(CLAVULANATE POTASSIUM, AMOXICILLIN) [Suspect]
     Indication: LUNG DISORDER
     Dosage: 1G,2X/DAY
     Dates: start: 20050201, end: 20050214

REACTIONS (2)
  - HEPATITIS CHOLESTATIC [None]
  - PRURIGO [None]
